FAERS Safety Report 8016162-3 (Version None)
Quarter: 2011Q4

REPORT INFORMATION
  Report Type: 
  Country: None (occurrence: None)
  Receive Date: 20111228
  Receipt Date: 20111228
  Transmission Date: 20120403
  Serious: Yes (Life-Threatening, Hospitalization, Other)
  Sender: FDA-Public Use
  Company Number: None

PATIENT
  Age: 85 Year
  Sex: Male
  Weight: 70.3 kg

DRUGS (1)
  1. VANCOMYCIN [Suspect]
     Indication: CELLULITIS
     Dosage: 1700 MG EVERY DAY IV
     Route: 042
     Dates: start: 20110907, end: 20110907

REACTIONS (8)
  - PERIPHERAL ISCHAEMIA [None]
  - ANAPHYLACTIC REACTION [None]
  - NO REACTION ON PREVIOUS EXPOSURE TO DRUG [None]
  - CYANOSIS [None]
  - UNRESPONSIVE TO STIMULI [None]
  - CELLULITIS [None]
  - PULSE ABSENT [None]
  - SINUS BRADYCARDIA [None]
